FAERS Safety Report 25899967 (Version 1)
Quarter: 2025Q4

REPORT INFORMATION
  Report Type: Report from Study
  Country: US (occurrence: US)
  Receive Date: 20251009
  Receipt Date: 20251009
  Transmission Date: 20260117
  Serious: Yes (Other)
  Sender: ABBVIE
  Company Number: US-ABBVIE-6491041

PATIENT
  Age: 50 Year
  Sex: Female

DRUGS (1)
  1. SKYRIZI [Suspect]
     Active Substance: RISANKIZUMAB-RZAA
     Indication: Crohn^s disease
     Route: 058
     Dates: start: 20240802

REACTIONS (5)
  - Medical device removal [Recovering/Resolving]
  - Colostomy bag user [Unknown]
  - Anal incontinence [Recovering/Resolving]
  - Gastrointestinal disorder [Unknown]
  - Colostomy [Unknown]

NARRATIVE: CASE EVENT DATE: 20250709
